FAERS Safety Report 17101742 (Version 1)
Quarter: 2019Q4

REPORT INFORMATION
  Report Type: Report from Study
  Country: FR (occurrence: FR)
  Receive Date: 20191202
  Receipt Date: 20191202
  Transmission Date: 20200122
  Serious: Yes (Hospitalization)
  Sender: FDA-Public Use
  Company Number: FR-SHIRE-FR201940977

PATIENT

DRUGS (7)
  1. TEDUGLUTIDE [Suspect]
     Active Substance: TEDUGLUTIDE
     Indication: SHORT-BOWEL SYNDROME
     Dosage: 2.85 MILLIGRAM (0.05 MG KG TED DAILY DOSE, 7 TED DOSES PER WEEK)
     Route: 065
     Dates: start: 20160115, end: 20170706
  2. TAZOCILLINE [Concomitant]
     Active Substance: PIPERACILLIN SODIUM\TAZOBACTAM SODIUM
     Indication: DERMATITIS
  3. TEDUGLUTIDE [Suspect]
     Active Substance: TEDUGLUTIDE
     Dosage: 2.85 MILLIGRAM (0.05 MG KG TED DAILY DOSE, 7 TED DOSES PER WEEK)
     Route: 065
     Dates: start: 20180108
  4. LOPERAMIDE [Concomitant]
     Active Substance: LOPERAMIDE
     Indication: DIARRHOEA
  5. TEDUGLUTIDE [Suspect]
     Active Substance: TEDUGLUTIDE
     Dosage: 2.85 MILLIGRAM (0.05 MG KG TED DAILY DOSE, 3 TED DOSES PER WEEK)
     Route: 065
     Dates: start: 20170706, end: 20170901
  6. VANCOMYCINE [VANCOMYCIN] [Concomitant]
     Active Substance: VANCOMYCIN
     Indication: DERMATITIS
  7. ZYVOXID [Concomitant]
     Active Substance: LINEZOLID
     Indication: DERMATITIS

REACTIONS (1)
  - General physical condition abnormal [Recovered/Resolved]

NARRATIVE: CASE EVENT DATE: 20170621
